FAERS Safety Report 25705613 (Version 1)
Quarter: 2025Q3

REPORT INFORMATION
  Report Type: Spontaneous
  Country: US (occurrence: None)
  Receive Date: 20250819
  Receipt Date: 20250819
  Transmission Date: 20251020
  Serious: No
  Sender: FDA-CTU
  Company Number: None

PATIENT
  Age: 53 Year
  Sex: Female
  Weight: 94.05 kg

DRUGS (13)
  1. DEFINITY [Suspect]
     Active Substance: PERFLUTREN
     Indication: Echocardiogram
     Dates: start: 20250819, end: 20250819
  2. Holter monitor [Concomitant]
  3. ropranolol [Concomitant]
  4. DYAZIDE [Concomitant]
     Active Substance: HYDROCHLOROTHIAZIDE\TRIAMTERENE
  5. CALCIUM [Concomitant]
     Active Substance: CALCIUM
  6. TIRZEPATIDE [Concomitant]
     Active Substance: TIRZEPATIDE
  7. VITAMIN D3 [Concomitant]
     Active Substance: CHOLECALCIFEROL
  8. COENZYME Q10 [Concomitant]
     Active Substance: DIETARY SUPPLEMENT\UBIDECARENONE
  9. LUTEIN [Concomitant]
     Active Substance: LUTEIN
  10. VITAMINS [Concomitant]
     Active Substance: VITAMINS
  11. FISH OIL [Concomitant]
     Active Substance: FISH OIL
  12. MAGNESIUM [Concomitant]
     Active Substance: MAGNESIUM
  13. CINNAMON [Concomitant]
     Active Substance: CINNAMON

REACTIONS (6)
  - Headache [None]
  - Chest pain [None]
  - Back pain [None]
  - Dizziness [None]
  - Dyspnoea [None]
  - Infusion related reaction [None]

NARRATIVE: CASE EVENT DATE: 20250819
